FAERS Safety Report 8154448-2 (Version None)
Quarter: 2012Q1

REPORT INFORMATION
  Report Type: 
  Country: None (occurrence: None)
  Receive Date: 20120217
  Receipt Date: 20120217
  Transmission Date: 20120608
  Serious: Yes (Death, Life-Threatening, Hospitalization, Other)
  Sender: FDA-Public Use
  Company Number: None

PATIENT
  Age: 77 Year
  Sex: Male

DRUGS (1)
  1. ZOSYN [Suspect]
     Indication: ANAPHYLACTIC SHOCK
     Dosage: IV
     Route: 042
     Dates: start: 20100407

REACTIONS (2)
  - CRANIOCEREBRAL INJURY [None]
  - ANAPHYLACTIC SHOCK [None]
